FAERS Safety Report 7597536-1 (Version None)
Quarter: 2011Q3

REPORT INFORMATION
  Report Type: 
  Country: None (occurrence: None)
  Receive Date: 20110708
  Receipt Date: 20110629
  Transmission Date: 20111222
  Serious: Yes (Other)
  Sender: FDA-Public Use
  Company Number: PHHY2011BR30885

PATIENT
  Sex: Female

DRUGS (5)
  1. ASPIRIN [Concomitant]
  2. LOSARTAN POTASSIUM [Concomitant]
     Dosage: 1 UKN, BID
  3. FORMOTEROL FUMARATE [Suspect]
     Indication: BRONCHITIS
     Dates: start: 20090101
  4. BENEGRIP [Concomitant]
     Dosage: 2 UKN, QD
  5. BUFFERIN [Concomitant]
     Dosage: 81MG 1 TABLET AFTER THE LUNCH

REACTIONS (2)
  - DEMENTIA ALZHEIMER'S TYPE [None]
  - CEREBRAL ISCHAEMIA [None]
